FAERS Safety Report 7006014-X (Version None)
Quarter: 2010Q3

REPORT INFORMATION
  Report Type: 
  Country: None (occurrence: None)
  Receive Date: 20100921
  Receipt Date: 20100914
  Transmission Date: 20110219
  Serious: Yes (Death)
  Sender: FDA-Public Use
  Company Number: US-ABBOTT-10P-163-0670382-00

PATIENT
  Sex: Male
  Weight: 59.02 kg

DRUGS (4)
  1. DEPAKOTE [Suspect]
     Indication: EPILEPSY
     Dates: start: 20090220, end: 20100803
  2. DEPAKOTE [Suspect]
     Indication: MIGRAINE
  3. DILANTIN [Concomitant]
     Indication: EPILEPSY
  4. LORTAB [Concomitant]
     Indication: MIGRAINE

REACTIONS (2)
  - ASPHYXIA [None]
  - COMPLETED SUICIDE [None]
